FAERS Safety Report 5266275-4 (Version None)
Quarter: 2007Q1

REPORT INFORMATION
  Report Type: 
  Country: None (occurrence: None)
  Receive Date: 20070315
  Receipt Date: 20070308
  Transmission Date: 20070707
  Serious: Yes (Hospitalization)
  Sender: FDA-Public Use
  Company Number: US-MERCK-0702USA04651

PATIENT
  Age: 32 Year
  Sex: Female

DRUGS (1)
  1. INVANZ [Suspect]
     Indication: PROPHYLAXIS
     Route: 042

REACTIONS (2)
  - PERITONITIS [None]
  - ROAD TRAFFIC ACCIDENT [None]
